APPROVED DRUG PRODUCT: MEPERIDINE HYDROCHLORIDE
Active Ingredient: MEPERIDINE HYDROCHLORIDE
Strength: 100MG
Dosage Form/Route: TABLET;ORAL
Application: A088640 | Product #001
Applicant: BARR LABORATORIES INC
Approved: Sep 19, 1984 | RLD: No | RS: No | Type: DISCN